FAERS Safety Report 4534484-5 (Version None)
Quarter: 2004Q4

REPORT INFORMATION
  Report Type: 
  Country: None (occurrence: None)
  Receive Date: 20041221
  Receipt Date: 20041221
  Transmission Date: 20050328
  Serious: Yes (Other)
  Sender: FDA-Public Use
  Company Number: None

PATIENT
  Sex: Female
  Weight: 86.1834 kg

DRUGS (1)
  1. VIOXX [Suspect]
     Dosage: 25 MG X 1 DAY

REACTIONS (3)
  - ANEURYSM [None]
  - BLOOD PRESSURE [None]
  - OBSTRUCTION [None]
